FAERS Safety Report 7619595-X (Version None)
Quarter: 2011Q3

REPORT INFORMATION
  Report Type: 
  Country: None (occurrence: None)
  Receive Date: 20110719
  Receipt Date: 20110712
  Transmission Date: 20111222
  Serious: Yes (Other)
  Sender: FDA-Public Use
  Company Number: US-JNJFOC-20110704935

PATIENT
  Sex: Male

DRUGS (5)
  1. LEVAQUIN [Suspect]
     Indication: SINUSITIS
     Route: 048
  2. LEVAQUIN [Suspect]
     Indication: STAPHYLOCOCCAL INFECTION
     Route: 048
  3. LEVAQUIN [Suspect]
     Indication: PHARYNGITIS STREPTOCOCCAL
     Route: 048
  4. LEVAQUIN [Suspect]
     Indication: OROPHARYNGEAL PAIN
     Route: 048
  5. LEVAQUIN [Suspect]
     Indication: PYREXIA
     Route: 048

REACTIONS (3)
  - MENISCUS LESION [None]
  - CARPAL TUNNEL SYNDROME [None]
  - ROTATOR CUFF SYNDROME [None]
